FAERS Safety Report 18217597 (Version 1)
Quarter: 2020Q3

REPORT INFORMATION
  Report Type: Spontaneous
  Country: GB (occurrence: GB)
  Receive Date: 20200901
  Receipt Date: 20200901
  Transmission Date: 20201103
  Serious: Yes (Other)
  Sender: FDA-Public Use
  Company Number: GB-TEVA-2020-GB-1821346

PATIENT
  Age: 52 Year
  Sex: Male

DRUGS (9)
  1. TACROLIMUS. [Suspect]
     Active Substance: TACROLIMUS
     Indication: IMMUNOSUPPRESSANT DRUG THERAPY
     Dosage: 3 MILLIGRAM DAILY;
     Route: 065
  2. MYCOPHENOLATE MOFETIL. [Suspect]
     Active Substance: MYCOPHENOLATE MOFETIL
     Dosage: 2000 MILLIGRAM DAILY; DOSE INCREASED FOLLOWING CAMR
     Route: 065
  3. ALEMTUZUMAB [Suspect]
     Active Substance: ALEMTUZUMAB
     Indication: IMMUNOSUPPRESSANT DRUG THERAPY
     Dosage: ADMINISTERED ON DAY 0 AND DAY 1, AT INDUCTION (AS PART OF A CLINICAL TRIAL)
     Route: 058
  4. RITUXIMAB. [Suspect]
     Active Substance: RITUXIMAB
     Indication: IMMUNOSUPPRESSANT DRUG THERAPY
     Dosage: ADMINISTERED EVERY 6?8 MONTHS
     Route: 065
  5. MYCOPHENOLIC?ACID [Suspect]
     Active Substance: MYCOPHENOLIC ACID
     Indication: IMMUNOSUPPRESSANT DRUG THERAPY
     Route: 065
  6. TACROLIMUS. [Suspect]
     Active Substance: TACROLIMUS
     Dosage: 5 MILLIGRAM DAILY; DOSE INCREASED FOLLOWING CAMR
     Route: 065
  7. MYCOPHENOLATE MOFETIL. [Suspect]
     Active Substance: MYCOPHENOLATE MOFETIL
     Indication: IMMUNOSUPPRESSANT DRUG THERAPY
     Dosage: 1000 MILLIGRAM DAILY;
     Route: 065
  8. SIROLIMUS. [Suspect]
     Active Substance: SIROLIMUS
     Indication: IMMUNOSUPPRESSANT DRUG THERAPY
     Dosage: ADMINISTERED AS PART OF A CLINICAL TRIAL
     Route: 065
  9. PREDNISOLONE. [Suspect]
     Active Substance: PREDNISOLONE
     Indication: IMMUNOSUPPRESSANT DRUG THERAPY
     Dosage: 5 MILLIGRAM DAILY;
     Route: 065

REACTIONS (7)
  - Duodenitis [Recovered/Resolved]
  - Weight decreased [Recovered/Resolved]
  - Post transplant lymphoproliferative disorder [Recovering/Resolving]
  - Diarrhoea [Recovered/Resolved]
  - Diarrhoea haemorrhagic [Recovered/Resolved]
  - Intestinal villi atrophy [Recovered/Resolved]
  - Rectal haemorrhage [Recovered/Resolved]
